FAERS Safety Report 13465803 (Version 1)
Quarter: 2017Q2

REPORT INFORMATION
  Report Type: Spontaneous
  Country: US (occurrence: US)
  Receive Date: 20170420
  Receipt Date: 20170420
  Transmission Date: 20170830
  Serious: Yes (Death, Life-Threatening, Hospitalization, Disabling)
  Sender: FDA-Public Use
  Company Number: None

PATIENT
  Age: 68 Year
  Sex: Female
  Weight: 55.2 kg

DRUGS (11)
  1. NYSTATIN. [Concomitant]
     Active Substance: NYSTATIN
  2. OMEPRAZOLE. [Concomitant]
     Active Substance: OMEPRAZOLE
  3. LORATADINE. [Concomitant]
     Active Substance: LORATADINE
  4. OMEGA-3 ACIDS [Concomitant]
     Active Substance: OMEGA-3 FATTY ACIDS
  5. MULTIVITAMIN [Concomitant]
     Active Substance: VITAMINS
  6. NIVOLUMAB [Suspect]
     Active Substance: NIVOLUMAB
     Indication: SMALL CELL LUNG CANCER
     Route: 040
     Dates: start: 20170307, end: 20170307
  7. LYSINE [Concomitant]
     Active Substance: LYSINE
  8. LUTEIN [Concomitant]
     Active Substance: LUTEIN
  9. ZOFRAN [Concomitant]
     Active Substance: ONDANSETRON HYDROCHLORIDE
  10. PYRIDOSTIGMINE [Concomitant]
     Active Substance: PYRIDOSTIGMINE
  11. PREDNISONE. [Concomitant]
     Active Substance: PREDNISONE

REACTIONS (9)
  - Eyelid ptosis [None]
  - Myalgia [None]
  - Myasthenic syndrome [None]
  - Asthenia [None]
  - Diarrhoea [None]
  - Muscular weakness [None]
  - Respiratory muscle weakness [None]
  - Therapy cessation [None]
  - Transaminases increased [None]

NARRATIVE: CASE EVENT DATE: 20170412
